FAERS Safety Report 10342575 (Version 1)
Quarter: 2014Q3

REPORT INFORMATION
  Report Type: Spontaneous
  Country: SE (occurrence: SE)
  Receive Date: 20140725
  Receipt Date: 20140725
  Transmission Date: 20150326
  Serious: Yes (Hospitalization)
  Sender: FDA-Public Use
  Company Number: SE-PFIZER INC-2014206803

PATIENT
  Age: 89 Year
  Sex: Female

DRUGS (7)
  1. ARTELAC [Concomitant]
  2. ELIQUIS [Suspect]
     Active Substance: APIXABAN
     Dosage: UNK
  3. RAMIPRIL. [Suspect]
     Active Substance: RAMIPRIL
     Dosage: UNK
  4. ALLOPURINOL. [Concomitant]
     Active Substance: ALLOPURINOL
  5. METOPROLOL [Concomitant]
     Active Substance: METOPROLOL
  6. MOVICOL [Concomitant]
     Active Substance: POLYETHYLENE GLYCOL 3350\POTASSIUM CHLORIDE\SODIUM BICARBONATE\SODIUM CHLORIDE
  7. SOBRIL [Concomitant]
     Active Substance: OXAZEPAM

REACTIONS (1)
  - Blood creatine increased [Recovered/Resolved]

NARRATIVE: CASE EVENT DATE: 20140619
